FAERS Safety Report 8612041-9 (Version None)
Quarter: 2012Q3

REPORT INFORMATION
  Report Type: 
  Country: None (occurrence: None)
  Receive Date: 20120822
  Receipt Date: 20120816
  Transmission Date: 20120928
  Serious: Yes (Other)
  Sender: FDA-Public Use
  Company Number: US-PFIZER INC-2012014729

PATIENT
  Age: 61 Year
  Sex: Female
  Weight: 74.83 kg

DRUGS (10)
  1. FISH OIL [Concomitant]
     Dosage: UNK
  2. LYRICA [Suspect]
     Indication: FIBROMYALGIA
     Dosage: 75 MG, 1X/DAY
     Route: 048
     Dates: start: 20090101
  3. LYRICA [Suspect]
     Dosage: 75 MG, 1X/DAY
     Route: 048
     Dates: start: 20120101, end: 20120201
  4. IBUPROFEN [Concomitant]
     Dosage: UNK
  5. LYRICA [Suspect]
     Dosage: 75 MG, 2X/DAY
     Route: 048
     Dates: start: 20100601
  6. NORVASC [Concomitant]
     Indication: HYPERTENSION
     Dosage: UNK
  7. ASPIRIN [Concomitant]
     Dosage: UNK
  8. PERDIEM FIBER [Concomitant]
     Dosage: UNK
  9. LYRICA [Suspect]
     Dosage: 75 MG, 3X/DAY
     Route: 048
     Dates: end: 20120101
  10. PRILOSEC [Concomitant]
     Dosage: UNK

REACTIONS (16)
  - CATARACT [None]
  - MUSCLE DISORDER [None]
  - FEAR [None]
  - VISUAL ACUITY REDUCED [None]
  - TOOTHACHE [None]
  - CONFUSIONAL STATE [None]
  - GINGIVAL BLEEDING [None]
  - SOMNOLENCE [None]
  - WEIGHT FLUCTUATION [None]
  - ORAL PAIN [None]
  - PAIN IN EXTREMITY [None]
  - BLINDNESS UNILATERAL [None]
  - TOOTH DISORDER [None]
  - IMPAIRED DRIVING ABILITY [None]
  - VISUAL IMPAIRMENT [None]
  - MOOD ALTERED [None]
